FAERS Safety Report 17609425 (Version 2)
Quarter: 2020Q2

REPORT INFORMATION
  Report Type: Report from Study
  Country: TH (occurrence: TH)
  Receive Date: 20200401
  Receipt Date: 20200403
  Transmission Date: 20200713
  Serious: Yes (Hospitalization, Other)
  Sender: FDA-Public Use
  Company Number: PHHY2018TH051121

PATIENT
  Age: 69 Year
  Sex: Male
  Weight: 56.4 kg

DRUGS (31)
  1. NIFEDIPINE - SLOW RELEASE [Concomitant]
     Active Substance: NIFEDIPINE
     Indication: HYPERTENSION
     Dosage: 60 MG, UNK
     Route: 065
     Dates: start: 2013
  2. CARVEDILOL. [Concomitant]
     Active Substance: CARVEDILOL
     Indication: CORONARY ARTERY DISEASE
     Dosage: 6.25 OT, UNK
     Route: 048
     Dates: start: 20040808
  3. DIPHERELINE [Concomitant]
     Active Substance: TRIPTORELIN ACETATE
     Dosage: 11.25 OT, UNK
     Route: 030
     Dates: start: 20190420, end: 20190420
  4. CARVEDILOL. [Concomitant]
     Active Substance: CARVEDILOL
     Dosage: 6.25 UNK, UNK
     Route: 048
     Dates: start: 20170810
  5. ATORVASTATIN [Concomitant]
     Active Substance: ATORVASTATIN
     Indication: DYSLIPIDAEMIA
     Dosage: 40 OT, UNK
     Route: 048
     Dates: start: 1979
  6. FERROUS SULFATE. [Concomitant]
     Active Substance: FERROUS SULFATE
     Indication: PROPHYLAXIS
     Dosage: 2 DF, UNK
     Route: 065
     Dates: start: 2017
  7. VOTRIENT [Suspect]
     Active Substance: PAZOPANIB HYDROCHLORIDE
     Dosage: 600 MG
     Route: 048
     Dates: start: 20180727, end: 20190724
  8. ASPIRIN. [Concomitant]
     Active Substance: ASPIRIN
     Indication: CORONARY ARTERY DISEASE
     Dosage: 81 MG, UNK
     Route: 048
     Dates: start: 20040808, end: 20180713
  9. FOLIO [Concomitant]
     Active Substance: FOLIC ACID
     Indication: PROPHYLAXIS
     Dosage: 1 DF, UNK
     Route: 065
     Dates: start: 2017
  10. DIPHERELINE [Concomitant]
     Active Substance: TRIPTORELIN ACETATE
     Indication: PROSTATE CANCER
     Dosage: 11.25 OT, UNK
     Route: 030
     Dates: start: 20180210, end: 20180210
  11. DIPHERELINE [Concomitant]
     Active Substance: TRIPTORELIN ACETATE
     Dosage: 11.25 OT, UNK
     Route: 030
     Dates: start: 20181027, end: 20181027
  12. ATORVASTATIN [Concomitant]
     Active Substance: ATORVASTATIN
     Indication: DYSLIPIDAEMIA
     Dosage: 40 MG, UNK
     Route: 048
     Dates: start: 20151006
  13. FOLIO [Concomitant]
     Active Substance: FOLIC ACID
     Dosage: 1 OT, UNK
     Route: 048
     Dates: start: 20170806
  14. EZETROL [Concomitant]
     Active Substance: EZETIMIBE
     Dosage: 5 OT, UNK
     Route: 048
     Dates: start: 20180830
  15. CLOPIDOGREL [Concomitant]
     Active Substance: CLOPIDOGREL BISULFATE
     Indication: CORONARY ARTERY DISEASE
     Dosage: 75 OT, UNK
     Route: 048
     Dates: start: 20180720
  16. DIPHERELINE [Concomitant]
     Active Substance: TRIPTORELIN ACETATE
     Dosage: 11.25 OT, UNK
     Route: 030
     Dates: start: 20180804, end: 20180804
  17. HYDRALAZINE [Concomitant]
     Active Substance: HYDRALAZINE HYDROCHLORIDE
     Indication: HYPERTENSION
     Dosage: 25 OT, UNK
     Route: 048
     Dates: start: 20180710
  18. POCITRIN [Concomitant]
     Indication: CORONARY ARTERY DISEASE
     Dosage: UNK
     Route: 048
     Dates: start: 20180720, end: 20180721
  19. CARVEDILOL. [Concomitant]
     Active Substance: CARVEDILOL
     Dosage: 6.25 MG, UNK
     Route: 065
     Dates: start: 2016
  20. EZETROL [Concomitant]
     Active Substance: EZETIMIBE
     Indication: DYSLIPIDAEMIA
     Dosage: 10 OT, UNK
     Route: 048
     Dates: start: 1979
  21. PREVACID FDT [Concomitant]
     Active Substance: LANSOPRAZOLE
     Indication: PROPHYLAXIS
     Dosage: 15 OT, UNK
     Route: 048
     Dates: start: 20181226
  22. VOTRIENT [Suspect]
     Active Substance: PAZOPANIB HYDROCHLORIDE
     Indication: RENAL CELL CARCINOMA
     Dosage: 600 MG, UNK
     Route: 048
     Dates: start: 20180629, end: 20180712
  23. SPIRONOLACTONE. [Concomitant]
     Active Substance: SPIRONOLACTONE
     Indication: HYPERTENSION
     Dosage: 25 OT, UNK
     Route: 048
     Dates: start: 1979
  24. EZETROL [Concomitant]
     Active Substance: EZETIMIBE
     Dosage: 10 OT, UNK
     Route: 048
     Dates: start: 20160616, end: 20180830
  25. FERROUS SULFATE. [Concomitant]
     Active Substance: FERROUS SULFATE
     Dosage: 1 OT, UNK
     Route: 048
     Dates: start: 20151124
  26. SPIRONOLACTONE. [Concomitant]
     Active Substance: SPIRONOLACTONE
     Dosage: 25 OT, UNK
     Route: 048
     Dates: start: 20140420, end: 20180710
  27. FUROSEMIDE. [Concomitant]
     Active Substance: FUROSEMIDE
     Indication: CORONARY ARTERY DISEASE
     Dosage: 20 OT, UNK
     Route: 048
     Dates: start: 20180720
  28. SODAMINT [Concomitant]
     Indication: PROPHYLAXIS
     Dosage: 600 OT, UNK
     Route: 048
     Dates: start: 20190220
  29. OMEPRAZOLE. [Concomitant]
     Active Substance: OMEPRAZOLE
     Indication: PROPHYLAXIS
     Dosage: 20 MG, UNK
     Route: 065
     Dates: start: 2015
  30. ADALAT [Concomitant]
     Active Substance: NIFEDIPINE
     Indication: HYPERTENSION
     Dosage: 60 OT, UNK
     Route: 048
     Dates: start: 1979
  31. DIPHERELINE [Concomitant]
     Active Substance: TRIPTORELIN ACETATE
     Dosage: 11.25 OT, UNK
     Route: 030
     Dates: start: 20190119, end: 20190119

REACTIONS (13)
  - Fatigue [Recovered/Resolved]
  - Swelling [Not Recovered/Not Resolved]
  - Hyperkalaemia [Recovered/Resolved]
  - Hypertension [Unknown]
  - Anaemia [Recovered/Resolved]
  - Melaena [Recovered/Resolved]
  - Anaemia [Recovered/Resolved]
  - Transaminases increased [Recovered/Resolved]
  - Diarrhoea [Recovered/Resolved]
  - Weight decreased [Recovered/Resolved]
  - Abdominal hernia [Recovered/Resolved]
  - Suprapubic pain [Not Recovered/Not Resolved]
  - Blood creatinine increased [Unknown]

NARRATIVE: CASE EVENT DATE: 20180711
